FAERS Safety Report 4645792-1 (Version None)
Quarter: 2005Q2

REPORT INFORMATION
  Report Type: 
  Country: None (occurrence: None)
  Receive Date: 20050425
  Receipt Date: 20050407
  Transmission Date: 20051028
  Serious: Yes (Life-Threatening)
  Sender: FDA-Public Use
  Company Number: 1314819-2005-00008

PATIENT

DRUGS (1)
  1. GLADASE PAPAIN-UREA DEBRIDING OINTMENT 8.3 X 10 (5) USP UNITS OF ACTIV [Suspect]
     Dosage: ONCE, TOPICAL 060

REACTIONS (1)
  - ANAPHYLACTIC SHOCK [None]
